FAERS Safety Report 4853595-8 (Version None)
Quarter: 2005Q4

REPORT INFORMATION
  Report Type: 
  Country: None (occurrence: None)
  Receive Date: 20051214
  Receipt Date: 20051206
  Transmission Date: 20060501
  Serious: Yes (Hospitalization)
  Sender: FDA-Public Use
  Company Number: PHRM2005FR03220

PATIENT
  Age: 48 Year
  Sex: Female

DRUGS (9)
  1. DEXAGRANE [Suspect]
     Indication: CONJUNCTIVITIS
     Dosage: 6 DF, QD
     Dates: start: 20050827, end: 20050911
  2. CORTANCYL [Concomitant]
     Dosage: 5 MG, QD
     Route: 048
     Dates: start: 19980101
  3. FLUORESCEINE FAURE [Concomitant]
     Route: 065
     Dates: start: 20050823, end: 20050827
  4. CACIT D3 [Concomitant]
     Dosage: 1 DF, QD
     Route: 048
  5. LAMISIL [Suspect]
     Indication: FUNGAL SKIN INFECTION
     Dosage: 250 MG, QD
     Route: 048
     Dates: start: 20050823, end: 20050906
  6. AMYCOR [Suspect]
     Route: 061
     Dates: start: 20050823, end: 20050911
  7. SOLUBACTER [Suspect]
     Route: 061
     Dates: start: 20050823, end: 20050827
  8. DEFLAMOL [Suspect]
     Route: 061
     Dates: start: 20050823, end: 20050829
  9. RIFAMYCINE CHIBRET [Suspect]
     Indication: CONJUNCTIVITIS
     Dosage: 6 DF, QD
     Dates: start: 20050827, end: 20050911

REACTIONS (6)
  - BLOOD PRESSURE SYSTOLIC DECREASED [None]
  - C-REACTIVE PROTEIN INCREASED [None]
  - CONJUNCTIVITIS [None]
  - NEUTROPENIA [None]
  - PYREXIA [None]
  - RASH MACULO-PAPULAR [None]
